FAERS Safety Report 7989307-9 (Version None)
Quarter: 2011Q4

REPORT INFORMATION
  Report Type: 
  Country: None (occurrence: None)
  Receive Date: 20111219
  Receipt Date: 20111209
  Transmission Date: 20120403
  Serious: Yes (Other)
  Sender: FDA-Public Use
  Company Number: US-US-EMD SERONO, INC.-7099390

PATIENT
  Sex: Female
  Weight: 41 kg

DRUGS (3)
  1. REBIF [Suspect]
     Indication: PRIMARY PROGRESSIVE MULTIPLE SCLEROSIS
     Route: 058
     Dates: start: 20100509, end: 20101201
  2. ZANAFLEX [Concomitant]
     Indication: MUSCLE SPASTICITY
  3. REBIF [Suspect]
     Route: 058
     Dates: start: 20110926

REACTIONS (5)
  - URINARY TRACT INFECTION [None]
  - PNEUMONIA [None]
  - DYSPNOEA [None]
  - HEADACHE [None]
  - GENERAL PHYSICAL HEALTH DETERIORATION [None]
